FAERS Safety Report 10583717 (Version 1)
Quarter: 2014Q4

REPORT INFORMATION
  Report Type: Spontaneous
  Country: IT (occurrence: None)
  Receive Date: 20141112
  Receipt Date: 20141112
  Transmission Date: 20150529
  Serious: Yes (Hospitalization)
  Sender: FDA-Public Use
  Company Number: IMP_08079_2014

PATIENT
  Age: 29 Year
  Sex: Female

DRUGS (2)
  1. METFORMIN HCL [Suspect]
     Active Substance: METFORMIN HYDROCHLORIDE
     Indication: GLUCOSE TOLERANCE IMPAIRED
     Route: 048
     Dates: start: 201202, end: 20121202
  2. LEVOTHYROXINE [Concomitant]
     Active Substance: LEVOTHYROXINE

REACTIONS (10)
  - Rosacea [None]
  - Pruritus [None]
  - Rash [None]
  - Off label use [None]
  - Telangiectasia [None]
  - Burning sensation [None]
  - Lupus-like syndrome [None]
  - Drug ineffective [None]
  - Papule [None]
  - Myxoedema [None]

NARRATIVE: CASE EVENT DATE: 201202
